FAERS Safety Report 5059657-7 (Version None)
Quarter: 2006Q2

REPORT INFORMATION
  Report Type: 
  Country: None (occurrence: None)
  Receive Date: 20060629
  Receipt Date: 20060206
  Transmission Date: 20061013
  Serious: No
  Sender: FDA-Public Use
  Company Number: PHEH2006US01798

PATIENT
  Age: 82 Year
  Sex: Female

DRUGS (3)
  1. ENABLEX [Suspect]
     Indication: POLLAKIURIA
     Dosage: 7.5 MG QD
  2. NEXIUM [Concomitant]
  3. DIOVAN [Concomitant]

REACTIONS (1)
  - DRUG INEFFECTIVE [None]
